FAERS Safety Report 5973698-4 (Version None)
Quarter: 2008Q4

REPORT INFORMATION
  Report Type: 
  Country: None (occurrence: None)
  Receive Date: 20081201
  Receipt Date: 20081117
  Transmission Date: 20090506
  Serious: Yes (Other)
  Sender: FDA-Public Use
  Company Number: FR-B.I. PHARMACEUTICALS,INC./RIDGEFIELD-2008-FF-00830FF

PATIENT
  Sex: Female

DRUGS (11)
  1. VIRAMUNE [Suspect]
     Indication: HIV INFECTION
     Dosage: 400MG
     Route: 048
     Dates: start: 19990602
  2. EPIVIR [Concomitant]
     Indication: HIV INFECTION
     Dosage: 300MG
     Dates: start: 20031007
  3. ZIDOVUDINE [Concomitant]
     Indication: HIV INFECTION
     Route: 048
     Dates: start: 20020305, end: 20040101
  4. STAVUDINE [Concomitant]
     Indication: HIV INFECTION
     Route: 048
     Dates: start: 19970101, end: 20020305
  5. VIREAD [Concomitant]
     Indication: HIV INFECTION
     Dosage: ONE A DAY
  6. PEGASYS 180 [Concomitant]
     Indication: HIV INFECTION
     Dosage: ONCE A WEEK
     Dates: start: 20080901
  7. COPEGUS [Concomitant]
     Indication: HIV INFECTION
     Dates: start: 20080901
  8. LEVOTHYROX [Concomitant]
     Indication: HIV INFECTION
  9. NICOBION [Concomitant]
     Indication: HIV INFECTION
  10. DIFFU K [Concomitant]
     Indication: HIV INFECTION
  11. NEORECORMON [Concomitant]
     Indication: HIV INFECTION
     Dates: start: 20081013

REACTIONS (1)
  - HYPOACUSIS [None]
